FAERS Safety Report 9846363 (Version 1)
Quarter: 2014Q1

REPORT INFORMATION
  Report Type: Spontaneous
  Country: US (occurrence: None)
  Receive Date: 20140117
  Receipt Date: 20140117
  Transmission Date: 20141002
  Serious: Yes (Hospitalization)
  Sender: FDA-Public Use
  Company Number: 1401-0047

PATIENT
  Age: 82 Year
  Sex: Male
  Weight: 74.39 kg

DRUGS (5)
  1. EYLEA (AFLIBERCEPT) (INJECTION) (AFLIBERCEPT) [Suspect]
     Indication: MACULAR DEGENERATION
     Dosage: 1 IN 1 M
     Dates: start: 201305, end: 20130912
  2. LOSARTAN (LOSARTAN) [Concomitant]
  3. METOPROLOL (METOPROLOL) [Concomitant]
  4. MULTIVITAMIN (VIGRAN) (ERGOCALCIFEOL, ASCORBIC ACID, PYRIDOXINE HYDROCHLORIDE, THIAMINE HYDROCHLORIDE, RETINOL, RIBOFLAVIN, NICOTINAMIDE, CALCIUM PANTHOTHENATE) [Concomitant]
  5. SIMVASTATIN (SIMVASTATIN) [Concomitant]

REACTIONS (5)
  - Stress [None]
  - Dizziness [None]
  - Hypertension [None]
  - Drug ineffective [None]
  - Photopsia [None]
